FAERS Safety Report 18049843 (Version 2)
Quarter: 2020Q3

REPORT INFORMATION
  Report Type: Spontaneous
  Country: GB (occurrence: GB)
  Receive Date: 20200721
  Receipt Date: 20200825
  Transmission Date: 20201103
  Serious: Yes (Hospitalization)
  Sender: FDA-Public Use
  Company Number: GB-PFIZER INC-2020274803

PATIENT

DRUGS (3)
  1. TACROLIMUS. [Suspect]
     Active Substance: TACROLIMUS
     Indication: TRANSAMINASES INCREASED
     Dosage: UNK, CYCLIC
  2. METHYLPREDNISOLONE. [Suspect]
     Active Substance: METHYLPREDNISOLONE
     Indication: TRANSAMINASES INCREASED
     Dosage: UNK, CYCLIC
  3. APIXABAN [Suspect]
     Active Substance: APIXABAN
     Indication: PROPHYLAXIS

REACTIONS (1)
  - Lower respiratory tract infection [Unknown]
